FAERS Safety Report 4497498-X (Version None)
Quarter: 2004Q4

REPORT INFORMATION
  Report Type: 
  Country: None (occurrence: None)
  Receive Date: 20041110
  Receipt Date: 20040917
  Transmission Date: 20050328
  Serious: Yes (Death)
  Sender: FDA-Public Use
  Company Number: US-ROCHE-380946

PATIENT
  Age: 51 Year
  Sex: Male
  Weight: 75.3 kg

DRUGS (4)
  1. XELODA [Suspect]
     Route: 048
     Dates: start: 20040722, end: 20040825
  2. THALOMID [Concomitant]
     Route: 048
     Dates: start: 20040722, end: 20040825
  3. LASIX [Concomitant]
     Indication: OEDEMA
     Route: 048
     Dates: start: 20040715, end: 20040825
  4. ALDACTONE [Concomitant]
     Indication: OEDEMA
     Route: 048
     Dates: start: 20040715, end: 20040825

REACTIONS (2)
  - DISEASE PROGRESSION [None]
  - HEPATIC FAILURE [None]
